FAERS Safety Report 12483067 (Version 2)
Quarter: 2016Q3

REPORT INFORMATION
  Report Type: Report from Study
  Country: CA (occurrence: CA)
  Receive Date: 20160620
  Receipt Date: 20160907
  Transmission Date: 20161109
  Serious: Yes (Other)
  Sender: FDA-Public Use
  Company Number: PHHY2016CA082860

PATIENT
  Sex: Female

DRUGS (1)
  1. GILENYA [Suspect]
     Active Substance: FINGOLIMOD HYDROCHLORIDE
     Indication: MULTIPLE SCLEROSIS
     Dosage: UNK
     Route: 048
     Dates: start: 20140404, end: 20160615

REACTIONS (3)
  - Angiocentric lymphoma [Unknown]
  - Mycosis fungoides [Unknown]
  - Tumour necrosis [Unknown]

NARRATIVE: CASE EVENT DATE: 2015
